FAERS Safety Report 6571664-1 (Version None)
Quarter: 2010Q1

REPORT INFORMATION
  Report Type: 
  Country: None (occurrence: None)
  Receive Date: 20100205
  Receipt Date: 20100201
  Transmission Date: 20100710
  Serious: Yes (Death, Other)
  Sender: FDA-Public Use
  Company Number: PHHY2009IT40100

PATIENT
  Sex: Female

DRUGS (5)
  1. ZOMETA [Suspect]
     Indication: BREAST CANCER
     Dosage: 4 MG EVERY 28 DAYS
     Route: 042
     Dates: start: 20080301, end: 20080630
  2. AVASTIN [Suspect]
     Indication: METASTASES TO BREAST
     Dosage: 1 POSOLOGIC UNIT
     Route: 042
     Dates: start: 20080301, end: 20080805
  3. VINORELBINE [Concomitant]
     Dosage: UNK
     Dates: start: 20080701, end: 20080801
  4. TAXOL [Concomitant]
     Dosage: 1 INJECTION/ WEEK
  5. GEMCITABINE [Concomitant]
     Dosage: 1 INJECTION/ WEEK

REACTIONS (10)
  - BONE DISORDER [None]
  - DEATH [None]
  - DENTAL ALVEOLAR ANOMALY [None]
  - DISEASE PROGRESSION [None]
  - HYPERTENSION [None]
  - MUCOSAL HAEMORRHAGE [None]
  - OSTEONECROSIS [None]
  - RIB FRACTURE [None]
  - TOOTH ABSCESS [None]
  - WOUND DEHISCENCE [None]
